FAERS Safety Report 6815042-6 (Version None)
Quarter: 2010Q2

REPORT INFORMATION
  Report Type: 
  Country: None (occurrence: None)
  Receive Date: 20100630
  Receipt Date: 20100630
  Transmission Date: 20101027
  Serious: No
  Sender: FDA-Public Use
  Company Number: None

PATIENT
  Age: 44 Year
  Sex: Male
  Weight: 63.96 kg

DRUGS (1)
  1. TRAZODONE HYDROCHLORIDE [Suspect]
     Indication: SLEEP DISORDER
     Dosage: 50 MG HS PO
     Route: 048
     Dates: start: 20100121, end: 20100628

REACTIONS (1)
  - PRIAPISM [None]
